FAERS Safety Report 5495353-X (Version None)
Quarter: 2007Q4

REPORT INFORMATION
  Report Type: 
  Country: None (occurrence: None)
  Receive Date: 20071024
  Receipt Date: 20071023
  Transmission Date: 20080405
  Serious: Yes (Other)
  Sender: FDA-Public Use
  Company Number: NL-MERCK-0710NLD00046

PATIENT
  Age: 79 Year
  Sex: Male

DRUGS (3)
  1. COZAAR [Suspect]
     Indication: HYPERTENSION
     Route: 048
     Dates: start: 20041101
  2. BICALUTAMIDE [Suspect]
     Route: 048
     Dates: start: 20060401
  3. BUSERELIN ACETATE [Suspect]
     Route: 051
     Dates: start: 20040718

REACTIONS (2)
  - AGEUSIA [None]
  - ANOSMIA [None]
